FAERS Safety Report 19003908 (Version 2)
Quarter: 2021Q2

REPORT INFORMATION
  Report Type: Spontaneous
  Country: US (occurrence: US)
  Receive Date: 20210312
  Receipt Date: 20210408
  Transmission Date: 20210717
  Serious: Yes (Hospitalization, Other)
  Sender: FDA-Public Use
  Company Number: US-JAZZ-2021-US-004353

PATIENT
  Age: 36 Year
  Sex: Female
  Weight: 61.5 kg

DRUGS (2)
  1. XYREM [Suspect]
     Active Substance: SODIUM OXYBATE
     Indication: PRODUCT USED FOR UNKNOWN INDICATION
     Dosage: UNKNOWN DOSE AND FREQUENCY
     Route: 048
  2. APAP/CODEINE [CODEINE;PARACETAMOL] [Suspect]
     Active Substance: ACETAMINOPHEN\CODEINE PHOSPHATE
     Indication: PRODUCT USED FOR UNKNOWN INDICATION

REACTIONS (8)
  - Drug screen positive [Recovered/Resolved]
  - Confusional state [Recovered/Resolved]
  - Liver function test abnormal [Recovered/Resolved]
  - Depressed level of consciousness [Recovered/Resolved]
  - Mental disorder [Unknown]
  - Overdose [Unknown]
  - Agitation [Recovered/Resolved]
  - Diverticulitis [Unknown]

NARRATIVE: CASE EVENT DATE: 20210221
